FAERS Safety Report 17559477 (Version 2)
Quarter: 2020Q2

REPORT INFORMATION
  Report Type: Spontaneous
  Country: US (occurrence: US)
  Receive Date: 20200319
  Receipt Date: 20200602
  Transmission Date: 20200713
  Serious: Yes (Other)
  Sender: FDA-Public Use
  Company Number: US-GILEAD-2020-0455406

PATIENT
  Sex: Male

DRUGS (1)
  1. VIREAD [Suspect]
     Active Substance: TENOFOVIR DISOPROXIL FUMARATE
     Indication: HIV INFECTION
     Dosage: UNK
     Route: 048
     Dates: start: 200702, end: 201701

REACTIONS (9)
  - Pain [Unknown]
  - Osteoporosis [Unknown]
  - Osteopenia [Unknown]
  - Emotional distress [Unknown]
  - Bone loss [Unknown]
  - Bone density decreased [Unknown]
  - Economic problem [Unknown]
  - Osteonecrosis [Unknown]
  - Tooth loss [Unknown]
